FAERS Safety Report 7920223 (Version 5)
Quarter: 2012Q4

REPORT INFORMATION
  Report Type: 
  Country: CA (occurrence: CA)
  Receive Date: 20110429
  Receipt Date: 20121112
  Transmission Date: 20130627
  Serious: Yes (Other)
  Sender: FDA-Public Use
  Company Number: PHHY2011CA33079

PATIENT
  Sex: Male

DRUGS (1)
  1. SANDOSTATIN LAR [Suspect]
     Indication: ACROMEGALY
     Dosage: 30 mg, every 3 weeks
     Route: 030
     Dates: start: 20070609, end: 20120907

REACTIONS (12)
  - Sputum discoloured [Unknown]
  - Respiratory tract congestion [Unknown]
  - Nasal congestion [Unknown]
  - Chest discomfort [Unknown]
  - Hypoaesthesia [Unknown]
  - Anxiety [Unknown]
  - Feeling abnormal [Unknown]
  - Mental disorder [Unknown]
  - Gait disturbance [Unknown]
  - Muscular weakness [Unknown]
  - Insomnia [Unknown]
  - Asthenia [Unknown]
